FAERS Safety Report 16174397 (Version 1)
Quarter: 2019Q2

REPORT INFORMATION
  Report Type: Spontaneous
  Country: PL (occurrence: PL)
  Receive Date: 20190409
  Receipt Date: 20190409
  Transmission Date: 20190711
  Serious: Yes (Hospitalization)
  Sender: FDA-Public Use
  Company Number: PHHY2019PL076548

PATIENT
  Age: 61 Year
  Weight: 71 kg

DRUGS (1)
  1. TEGRETOL XR [Suspect]
     Active Substance: CARBAMAZEPINE
     Indication: EPILEPSY
     Dosage: 400 MG, UNK
     Route: 048

REACTIONS (4)
  - Thrombocytopenia [Unknown]
  - Urticaria [Unknown]
  - Thyroid hormones decreased [Unknown]
  - Anaemia [Unknown]
